FAERS Safety Report 12535686 (Version 1)
Quarter: 2016Q3

REPORT INFORMATION
  Report Type: Spontaneous
  Country: US (occurrence: None)
  Receive Date: 20160706
  Receipt Date: 20160706
  Transmission Date: 20161109
  Serious: Yes (Hospitalization)
  Sender: FDA-Public Use
  Company Number: None

PATIENT
  Age: 0 Day
  Sex: Male
  Weight: 7.71 kg

DRUGS (3)
  1. CYTOTEC [Suspect]
     Active Substance: MISOPROSTOL
     Indication: INDUCED LABOUR
     Route: 048
     Dates: start: 20160103, end: 20160103
  2. POLY VI SOL [Concomitant]
  3. LANSOPRAZOLE. [Concomitant]
     Active Substance: LANSOPRAZOLE

REACTIONS (5)
  - Contraindicated product administered [None]
  - Bradycardia neonatal [None]
  - Haematemesis [None]
  - Meconium in amniotic fluid [None]
  - Oesophageal ulcer [None]

NARRATIVE: CASE EVENT DATE: 20160104
